FAERS Safety Report 19370562 (Version 1)
Quarter: 2021Q2

REPORT INFORMATION
  Report Type: Spontaneous
  Country: US (occurrence: US)
  Receive Date: 20210604
  Receipt Date: 20210604
  Transmission Date: 20210717
  Serious: Yes (Life-Threatening, Hospitalization, Other)
  Sender: FDA-Public Use
  Company Number: US-AUROBINDO-AUR-APL-2019-076706

PATIENT
  Age: 65 Year
  Sex: Male

DRUGS (4)
  1. CIPROFLOXACIN. [Suspect]
     Active Substance: CIPROFLOXACIN
     Indication: URINARY TRACT INFECTION
     Dosage: 500 MILLIGRAM, TWO TIMES A DAY
     Route: 065
  2. SALBUTAMOL SULFATE [Concomitant]
     Active Substance: ALBUTEROL SULFATE
     Indication: EMPHYSEMA
     Dosage: UNK
     Route: 055
  3. CITALOPRAM [Interacting]
     Active Substance: CITALOPRAM HYDROBROMIDE
     Indication: DEPRESSION
     Dosage: 60 MILLIGRAM, DAILY
     Route: 065
  4. COMBIVENT [Concomitant]
     Active Substance: ALBUTEROL SULFATE\IPRATROPIUM BROMIDE
     Indication: EMPHYSEMA
     Dosage: UNK UNK, FOUR TIMES/DAY
     Route: 055

REACTIONS (8)
  - Torsade de pointes [Recovering/Resolving]
  - Ejection fraction decreased [Recovered/Resolved]
  - Ventricular extrasystoles [Unknown]
  - Electrocardiogram QT prolonged [Recovering/Resolving]
  - Seizure [Recovered/Resolved]
  - Depressed level of consciousness [Recovered/Resolved]
  - Mental disorder [Recovered/Resolved]
  - Drug interaction [Unknown]
